FAERS Safety Report 4972666-9 (Version None)
Quarter: 2006Q1

REPORT INFORMATION
  Report Type: 
  Country: None (occurrence: None)
  Receive Date: 20060216
  Receipt Date: 20030211
  Transmission Date: 20060701
  Serious: Yes (Other)
  Sender: FDA-Public Use
  Company Number: 2002IM000551

PATIENT
  Age: 51 Year
  Sex: Female
  Weight: 67.1324 kg

DRUGS (9)
  1. INTERFERON GAMMA-1B [Suspect]
     Indication: OVARIAN CANCER
     Dosage: 100 UG, TIW, SUBCUTANEOUS
     Route: 058
     Dates: start: 20020703, end: 20020712
  2. PACLITAXEL [Suspect]
     Indication: OVARIAN CANCER
     Dosage: 294 MG, Q3W, INTRAVENOUS
     Route: 042
     Dates: start: 20020703, end: 20020703
  3. CARBOPLATIN [Suspect]
     Indication: OVARIAN CANCER
     Dosage: 517 MG, Q3W, INTRAVENOUS
     Route: 042
     Dates: start: 20020703, end: 20020703
  4. ALTACE [Concomitant]
  5. DILTIAZEM HYDROCHLORIDE [Concomitant]
  6. CLARITIN [Concomitant]
  7. LEVAQUIN [Concomitant]
  8. FOSAMAX [Concomitant]
  9. ESTROGEN PATCH [Concomitant]

REACTIONS (1)
  - NEUTROPENIA [None]
